FAERS Safety Report 8595864-4 (Version None)
Quarter: 2012Q3

REPORT INFORMATION
  Report Type: 
  Country: None (occurrence: None)
  Receive Date: 20120815
  Receipt Date: 20120809
  Transmission Date: 20120928
  Serious: Yes (Other)
  Sender: FDA-Public Use
  Company Number: DE-PFIZER INC-2012195189

PATIENT
  Age: 48 Year
  Sex: Female

DRUGS (1)
  1. LYRICA [Suspect]
     Dosage: 50 MG, 1X/DAY

REACTIONS (10)
  - KNEE DEFORMITY [None]
  - BREAST DISORDER [None]
  - BREAST PAIN [None]
  - OEDEMA PERIPHERAL [None]
  - FLUID RETENTION [None]
  - WEIGHT INCREASED [None]
  - DRUG INTOLERANCE [None]
  - MENSTRUATION IRREGULAR [None]
  - HAIR TEXTURE ABNORMAL [None]
  - DISORIENTATION [None]
